FAERS Safety Report 20897182 (Version 1)
Quarter: 2022Q2

REPORT INFORMATION
  Report Type: Spontaneous
  Country: CZ (occurrence: CZ)
  Receive Date: 20220531
  Receipt Date: 20220531
  Transmission Date: 20220720
  Serious: Yes (Death, Life-Threatening, Hospitalization, Other)
  Sender: FDA-Public Use
  Company Number: None

PATIENT
  Age: 66 Year
  Sex: Male
  Weight: 86.5 kg

DRUGS (11)
  1. MYLOTARG [Suspect]
     Active Substance: GEMTUZUMAB OZOGAMICIN
     Indication: Acute myeloid leukaemia
     Dosage: FREQ: 3 D; 5MG/100ML 14.4.-1.ST DAY OF CHEMOTERAPEUTIC PROTOCOL, 17.4.-4TH. 20.4.-7TH
     Route: 042
     Dates: start: 20220414, end: 20220420
  2. ANIDULAFUNGIN [Concomitant]
     Active Substance: ANIDULAFUNGIN
     Indication: Febrile neutropenia
     Dosage: 100 MG
     Route: 042
     Dates: start: 20220501, end: 20220503
  3. MEROPENEM [Concomitant]
     Active Substance: MEROPENEM
     Indication: Febrile neutropenia
     Dosage: 6 G
     Route: 042
     Dates: start: 20220420, end: 20220501
  4. LINEZOLID [Concomitant]
     Active Substance: LINEZOLID
     Indication: Febrile neutropenia
     Dosage: 1200 MG
     Route: 042
     Dates: start: 20220419, end: 20220501
  5. AVIBACTAM SODIUM\CEFTAZIDIME [Concomitant]
     Active Substance: AVIBACTAM SODIUM\CEFTAZIDIME
     Indication: Febrile neutropenia
     Dosage: 7 G
     Dates: start: 20220501, end: 20220503
  6. METRONIDAZOLE NORIDEM [Concomitant]
     Indication: Febrile neutropenia
     Dosage: 1500 MG
     Route: 042
     Dates: start: 20220426, end: 20220501
  7. TYGACIL [Concomitant]
     Active Substance: TIGECYCLINE
     Indication: Febrile neutropenia
     Dosage: 200 MG
     Route: 042
     Dates: start: 20220430, end: 20220503
  8. VORICONAZOLE OLIKLA [Concomitant]
     Indication: Febrile neutropenia
     Dosage: 400 MG
     Route: 042
     Dates: start: 20220428, end: 20220501
  9. IDARUBICIN [Concomitant]
     Active Substance: IDARUBICIN
     Indication: Acute myeloid leukaemia
     Dosage: 20 MG
     Route: 042
     Dates: start: 20220414, end: 20220416
  10. COLISTIMETHATE SODIUM [Concomitant]
     Active Substance: COLISTIMETHATE SODIUM
     Indication: Febrile neutropenia
     Dosage: 12000000 IU
     Route: 042
     Dates: start: 20220501, end: 20220503
  11. ALEXAN [CYTARABINE] [Concomitant]
     Indication: Acute myeloid leukaemia
     Dosage: 408 MG
     Route: 042
     Dates: start: 20220414, end: 20220420

REACTIONS (1)
  - Acute hepatic failure [Fatal]

NARRATIVE: CASE EVENT DATE: 20220430
